FAERS Safety Report 24934344 (Version 1)
Quarter: 2025Q1

REPORT INFORMATION
  Report Type: Spontaneous
  Country: DK (occurrence: DK)
  Receive Date: 20250206
  Receipt Date: 20250206
  Transmission Date: 20250408
  Serious: Yes (Disabling, Other)
  Sender: NOVO NORDISK
  Company Number: None

PATIENT
  Age: 75 Year
  Sex: Female

DRUGS (11)
  1. OZEMPIC [Suspect]
     Active Substance: SEMAGLUTIDE
     Indication: Type 2 diabetes mellitus
     Dosage: 1 MG, QW
     Route: 058
     Dates: start: 20210622, end: 20241217
  2. METFORMIN [Concomitant]
     Active Substance: METFORMIN HYDROCHLORIDE
     Indication: Type 2 diabetes mellitus
     Dosage: 500 MG, QD
     Route: 048
     Dates: start: 2018
  3. PANTOPRAZOLE SODIUM [Concomitant]
     Active Substance: PANTOPRAZOLE SODIUM
     Indication: Gastric pH decreased
     Route: 048
     Dates: start: 2016
  4. CLOPIDOGREL HYDROCHLORIDE [Concomitant]
     Active Substance: CLOPIDOGREL HYDROCHLORIDE
     Indication: Anticoagulant therapy
     Dosage: 75 MG, QD
     Route: 048
     Dates: start: 2017
  5. FUROSEMIDE [Concomitant]
     Active Substance: FUROSEMIDE
     Indication: Diuretic therapy
     Dosage: 60 MG, QD
     Route: 048
     Dates: start: 2018
  6. METOPROLOL SUCCINATE [Concomitant]
     Active Substance: METOPROLOL SUCCINATE
     Indication: Hypertension
     Dosage: 50 MG, QD
     Route: 048
     Dates: start: 2015
  7. SIMVASTATIN [Concomitant]
     Active Substance: SIMVASTATIN
     Indication: Hypercholesterolaemia
     Dosage: 40 MG, QD
     Route: 048
     Dates: start: 2020
  8. ECONAZOLE NITRATE\TRIAMCINOLONE [Concomitant]
     Active Substance: ECONAZOLE NITRATE\TRIAMCINOLONE
     Indication: Psoriasis
     Dates: start: 202401
  9. CLOBETASOL PROPIONATE [Concomitant]
     Active Substance: CLOBETASOL PROPIONATE
     Indication: Eczema
     Dates: start: 2023
  10. MIRABEGRON [Concomitant]
     Active Substance: MIRABEGRON
     Indication: Incontinence
     Dosage: 50 MG, QD
     Route: 048
     Dates: start: 20190115, end: 20241217
  11. ACETAMINOPHEN [Concomitant]
     Active Substance: ACETAMINOPHEN
     Indication: Pain
     Route: 048
     Dates: start: 20230523

REACTIONS (2)
  - Optic ischaemic neuropathy [Not Recovered/Not Resolved]
  - Visual impairment [Not Recovered/Not Resolved]

NARRATIVE: CASE EVENT DATE: 20241108
